FAERS Safety Report 4864559-2 (Version None)
Quarter: 2005Q4

REPORT INFORMATION
  Report Type: 
  Country: None (occurrence: None)
  Receive Date: 20051222
  Receipt Date: 20040123
  Transmission Date: 20060501
  Serious: Yes (Death)
  Sender: FDA-Public Use
  Company Number: 200410556US

PATIENT
  Sex: Male
  Weight: 29.9 kg

DRUGS (6)
  1. LANTUS [Suspect]
     Indication: DIABETES MELLITUS INSULIN-DEPENDENT
     Dosage: DOSE UNIT: UNITS
     Route: 058
     Dates: start: 20011222, end: 20011229
  2. NPH INSULIN [Concomitant]
     Dosage: DOSE UNIT: UNITS
     Route: 058
     Dates: end: 20011221
  3. NPH INSULIN [Concomitant]
     Dosage: DOSE UNIT: UNITS
     Route: 058
     Dates: end: 20011221
  4. NPH INSULIN [Concomitant]
     Dosage: DOSE UNIT: UNITS
     Dates: start: 20011222, end: 20011229
  5. HUMALOG [Concomitant]
     Dosage: DOSE: 1-2; DOSE UNIT: UNITS
     Route: 058
     Dates: end: 20011221
  6. HUMALOG [Concomitant]
     Dosage: DOSE: 1-2; DOSE UNIT: UNITS
     Dates: start: 20011222, end: 20011229

REACTIONS (2)
  - CARDIO-RESPIRATORY ARREST [None]
  - DIABETES MELLITUS [None]
